FAERS Safety Report 14092353 (Version 1)
Quarter: 2017Q4

REPORT INFORMATION
  Report Type: Spontaneous
  Country: US (occurrence: US)
  Receive Date: 20171015
  Receipt Date: 20171015
  Transmission Date: 20180321
  Serious: Yes (Other)
  Sender: FDA-Public Use
  Company Number: None

PATIENT
  Age: 43 Year
  Sex: Female
  Weight: 96.75 kg

DRUGS (4)
  1. TRESIBA [Suspect]
     Active Substance: INSULIN DEGLUDEC
     Indication: TYPE 2 DIABETES MELLITUS
     Dosage: ?          QUANTITY:3 INJECTION(S);?
     Route: 058
     Dates: start: 20170811, end: 20171014
  2. HUMALOG [Concomitant]
     Active Substance: INSULIN LISPRO
  3. ZYRTEC [Concomitant]
     Active Substance: CETIRIZINE HYDROCHLORIDE
  4. LEVOTHYROXINE. [Concomitant]
     Active Substance: LEVOTHYROXINE

REACTIONS (3)
  - Neck pain [None]
  - Hypersensitivity [None]
  - Myalgia [None]

NARRATIVE: CASE EVENT DATE: 20171001
